FAERS Safety Report 11258491 (Version 1)
Quarter: 2015Q3

REPORT INFORMATION
  Report Type: Report from Study
  Country: FR (occurrence: FR)
  Receive Date: 20150710
  Receipt Date: 20150710
  Transmission Date: 20151125
  Serious: Yes (Life-Threatening, Hospitalization)
  Sender: FDA-Public Use
  Company Number: FR-ROCHE-1194952

PATIENT
  Age: 62 Year
  Sex: Male
  Weight: 102 kg

DRUGS (53)
  1. TOCILIZUMAB [Suspect]
     Active Substance: TOCILIZUMAB
     Route: 065
     Dates: start: 20111208
  2. CANCIDAS [Suspect]
     Active Substance: CASPOFUNGIN ACETATE
     Indication: PRODUCT USED FOR UNKNOWN INDICATION
     Route: 065
     Dates: start: 20121214
  3. AMAREL [Concomitant]
     Active Substance: GLIMEPIRIDE
     Route: 065
  4. TANAKAN [Concomitant]
     Active Substance: GINKGO
     Route: 065
  5. LANTUS [Concomitant]
     Active Substance: INSULIN GLARGINE
     Route: 065
  6. FOSAVANCE [Concomitant]
     Active Substance: ALENDRONATE SODIUM\CHOLECALCIFEROL
     Dosage: DOAE 70MG/5600
     Route: 065
  7. NOVORAPID [Concomitant]
     Active Substance: INSULIN ASPART
     Dosage: DOSE: 22 IU + 25 IU+ 20 IU
     Route: 065
  8. INFLIXIMAB [Concomitant]
     Active Substance: INFLIXIMAB
  9. TOCILIZUMAB [Suspect]
     Active Substance: TOCILIZUMAB
     Indication: RHEUMATOID ARTHRITIS
     Route: 041
     Dates: start: 20110620, end: 20121022
  10. TOCILIZUMAB [Suspect]
     Active Substance: TOCILIZUMAB
     Route: 065
     Dates: start: 20110722
  11. TOCILIZUMAB [Suspect]
     Active Substance: TOCILIZUMAB
     Route: 065
     Dates: start: 20120202
  12. TOCILIZUMAB [Suspect]
     Active Substance: TOCILIZUMAB
     Route: 065
     Dates: start: 20120427
  13. ETANERCEPT [Concomitant]
     Active Substance: ETANERCEPT
     Indication: RHEUMATOID ARTHRITIS
     Route: 065
     Dates: start: 20100128, end: 201010
  14. TRAMADOL. [Concomitant]
     Active Substance: TRAMADOL
  15. TOCILIZUMAB [Suspect]
     Active Substance: TOCILIZUMAB
     Route: 065
     Dates: start: 20120720
  16. METHOTREXATE [Concomitant]
     Active Substance: METHOTREXATE
     Indication: RHEUMATOID ARTHRITIS
     Route: 065
  17. SPIRIVA [Concomitant]
     Active Substance: TIOTROPIUM BROMIDE MONOHYDRATE
     Route: 065
  18. TOCILIZUMAB [Suspect]
     Active Substance: TOCILIZUMAB
     Route: 065
     Dates: start: 20110818
  19. TOCILIZUMAB [Suspect]
     Active Substance: TOCILIZUMAB
     Route: 065
     Dates: start: 20120104
  20. TOCILIZUMAB [Suspect]
     Active Substance: TOCILIZUMAB
     Route: 065
     Dates: start: 20120622, end: 20120622
  21. TOCILIZUMAB [Suspect]
     Active Substance: TOCILIZUMAB
     Route: 065
     Dates: start: 20120817
  22. TOCILIZUMAB [Suspect]
     Active Substance: TOCILIZUMAB
     Route: 065
     Dates: start: 20121022
  23. METHOTREXATE [Concomitant]
     Active Substance: METHOTREXATE
     Route: 065
     Dates: start: 20110914
  24. DIFFU K [Concomitant]
     Active Substance: POTASSIUM CHLORIDE
     Route: 065
  25. DAFALGAN [Concomitant]
     Active Substance: ACETAMINOPHEN
     Route: 065
  26. MABTHERA [Concomitant]
     Active Substance: RITUXIMAB
     Route: 065
  27. ATORVASTATINE [Concomitant]
     Active Substance: ATORVASTATIN
     Route: 065
  28. KARDEGIC [Concomitant]
     Active Substance: ASPIRIN LYSINE
     Route: 065
  29. TOCILIZUMAB [Suspect]
     Active Substance: TOCILIZUMAB
     Route: 065
     Dates: start: 20110914
  30. CORTANCYL [Concomitant]
     Active Substance: PREDNISONE
     Route: 065
     Dates: start: 20120104
  31. AMLODIPINE [Concomitant]
     Active Substance: AMLODIPINE BESYLATE
     Route: 065
  32. PROCORALAN [Concomitant]
     Active Substance: IVABRADINE
     Route: 065
  33. SPECIAFOLDINE [Concomitant]
     Active Substance: FOLIC ACID
     Route: 065
  34. CORDARONE [Concomitant]
     Active Substance: AMIODARONE HYDROCHLORIDE
     Route: 065
  35. TOCILIZUMAB [Suspect]
     Active Substance: TOCILIZUMAB
     Route: 065
     Dates: start: 20111012
  36. TOCILIZUMAB [Suspect]
     Active Substance: TOCILIZUMAB
     Route: 065
     Dates: start: 20111109
  37. TOCILIZUMAB [Suspect]
     Active Substance: TOCILIZUMAB
     Route: 065
     Dates: start: 20120914
  38. CORTANCYL [Concomitant]
     Active Substance: PREDNISONE
     Indication: RHEUMATOID ARTHRITIS
     Route: 065
     Dates: start: 201002
  39. CORTANCYL [Concomitant]
     Active Substance: PREDNISONE
     Route: 065
     Dates: start: 20110914
  40. PLAVIX [Concomitant]
     Active Substance: CLOPIDOGREL BISULFATE
     Route: 065
  41. METFORMIN [Concomitant]
     Active Substance: METFORMIN HYDROCHLORIDE
     Route: 065
  42. CYMBALTA [Concomitant]
     Active Substance: DULOXETINE HYDROCHLORIDE
     Route: 065
  43. SERETIDE [Concomitant]
     Active Substance: FLUTICASONE FUROATE\SALMETEROL XINAFOATE
     Route: 065
  44. LASILIX [Concomitant]
     Active Substance: FUROSEMIDE
     Route: 065
  45. TOCILIZUMAB [Suspect]
     Active Substance: TOCILIZUMAB
     Route: 065
     Dates: start: 20120330
  46. TOCILIZUMAB [Suspect]
     Active Substance: TOCILIZUMAB
     Route: 065
     Dates: start: 20120525
  47. TAHOR [Concomitant]
     Active Substance: ATORVASTATIN CALCIUM
     Route: 065
  48. FUROSEMIDE. [Concomitant]
     Active Substance: FUROSEMIDE
     Route: 065
  49. TOCILIZUMAB [Suspect]
     Active Substance: TOCILIZUMAB
     Route: 065
     Dates: start: 20120302
  50. TAZOCILLINE [Suspect]
     Active Substance: PIPERACILLIN SODIUM\TAZOBACTAM SODIUM
     Indication: PRODUCT USED FOR UNKNOWN INDICATION
     Route: 065
     Dates: start: 20121212
  51. CORTANCYL [Concomitant]
     Active Substance: PREDNISONE
     Route: 065
  52. RAMIPRIL. [Concomitant]
     Active Substance: RAMIPRIL
     Route: 065
  53. OROCAL D3 [Concomitant]
     Active Substance: CALCIUM CARBONATE\CHOLECALCIFEROL
     Route: 065

REACTIONS (16)
  - Sepsis [Recovered/Resolved]
  - Left ventricular failure [Not Recovered/Not Resolved]
  - Rash maculo-papular [Recovered/Resolved]
  - Hypoxia [Recovered/Resolved]
  - Stomatitis [Recovered/Resolved]
  - Bronchitis bacterial [Recovered/Resolved]
  - Acute kidney injury [Recovered/Resolved]
  - Acute respiratory failure [Not Recovered/Not Resolved]
  - Pulmonary embolism [Recovered/Resolved]
  - Rheumatoid arthritis [Unknown]
  - Pneumonia [Not Recovered/Not Resolved]
  - Erysipelas [Recovered/Resolved]
  - Bronchitis fungal [Recovered/Resolved]
  - Renal tubular necrosis [Recovered/Resolved]
  - Diabetes mellitus inadequate control [Unknown]
  - Neutropenia [Recovered/Resolved]

NARRATIVE: CASE EVENT DATE: 2012
